FAERS Safety Report 21022024 (Version 1)
Quarter: 2022Q2

REPORT INFORMATION
  Report Type: Spontaneous
  Country: JP (occurrence: JP)
  Receive Date: 20220629
  Receipt Date: 20220629
  Transmission Date: 20220721
  Serious: Yes (Hospitalization, Other)
  Sender: FDA-Public Use
  Company Number: JP-WOCKHARDT BIO AG-2022WBA000076

PATIENT
  Age: 59 Year
  Sex: Male

DRUGS (10)
  1. METOCLOPRAMIDE [Suspect]
     Active Substance: METOCLOPRAMIDE
     Indication: Prophylaxis of nausea and vomiting
     Dosage: 15 MILLIGRAM PER DAY FOR 2?MONTHS
     Route: 065
  2. OLANZAPINE [Suspect]
     Active Substance: OLANZAPINE
     Indication: Product used for unknown indication
     Dosage: 5 MG INTERMITTENTLY (FOR A FEW DAYS EVERY 2?WEEKS)
     Route: 065
  3. PALONOSETRON [Concomitant]
     Active Substance: PALONOSETRON
     Indication: Prophylaxis of nausea and vomiting
     Dosage: 0.75 MILLIGRAM
     Route: 065
  4. DEXAMETHASONE [Concomitant]
     Active Substance: DEXAMETHASONE
     Indication: Prophylaxis of nausea and vomiting
     Dosage: 6.6 MILLIGRAM
     Route: 065
  5. APREPITANT [Concomitant]
     Active Substance: APREPITANT
     Indication: Prophylaxis of nausea and vomiting
     Dosage: 125 MILLIGRAM ONCE AT THE START DAY OF CHEMOTHERAPY EVERY 2?WEEKS
     Route: 065
  6. APREPITANT [Concomitant]
     Active Substance: APREPITANT
     Dosage: 80 MILLIGRAM  TWICE ON THE SECOND AND THIRD DAY OF CHEMOTHERAPY, EVERY 2?WEEKS
     Route: 065
  7. CLONAZEPAM [Concomitant]
     Active Substance: CLONAZEPAM
     Indication: Akathisia
     Dosage: 1.5 MILLIGRAM, QD
     Route: 065
  8. CLONAZEPAM [Concomitant]
     Active Substance: CLONAZEPAM
     Indication: Anxiety disorder due to a general medical condition
  9. BROTIZOLAM [Concomitant]
     Active Substance: BROTIZOLAM
     Indication: Akathisia
     Dosage: 0.25 MILLIGRAM, QD
     Route: 065
  10. BROTIZOLAM [Concomitant]
     Active Substance: BROTIZOLAM
     Indication: Anxiety disorder due to a general medical condition

REACTIONS (3)
  - Drug interaction [Recovered/Resolved]
  - Extrapyramidal disorder [Recovered/Resolved]
  - Product use in unapproved indication [Unknown]
